FAERS Safety Report 6823642-2 (Version None)
Quarter: 2010Q3

REPORT INFORMATION
  Report Type: 
  Country: None (occurrence: None)
  Receive Date: 20100708
  Receipt Date: 20060814
  Transmission Date: 20110219
  Serious: No
  Sender: FDA-Public Use
  Company Number: US-PFIZER INC-2006099910

PATIENT
  Sex: Male
  Weight: 86.18 kg

DRUGS (6)
  1. CHANTIX [Suspect]
     Indication: SMOKING CESSATION THERAPY
     Route: 048
     Dates: start: 20060806
  2. XENICAL [Concomitant]
  3. ISOSORBIDE [Concomitant]
  4. NORVASC [Concomitant]
  5. NEXIUM [Concomitant]
  6. FOLIC ACID [Concomitant]

REACTIONS (1)
  - NICOTINE DEPENDENCE [None]
